FAERS Safety Report 6263846-3 (Version None)
Quarter: 2009Q3

REPORT INFORMATION
  Report Type: 
  Country: None (occurrence: None)
  Receive Date: 20090701
  Receipt Date: 20090619
  Transmission Date: 20100115
  Serious: Yes (Other)
  Sender: FDA-Public Use
  Company Number: 173265USA

PATIENT
  Age: 15 Year
  Sex: Female

DRUGS (1)
  1. CLARITHROMYCIN EXTENDED RELEASE TABLETS 500 MG (CLARITHROMYCIN) [Suspect]
     Indication: LYME DISEASE
     Dosage: (500 MG), ORAL
     Route: 048
     Dates: start: 20080619

REACTIONS (3)
  - ANAPHYLACTIC REACTION [None]
  - RASH [None]
  - THROAT TIGHTNESS [None]
